FAERS Safety Report 9522442 (Version 1)
Quarter: 2013Q1

REPORT INFORMATION
  Report Type: Spontaneous
  Country: US (occurrence: None)
  Receive Date: 20130305
  Receipt Date: 20130305
  Transmission Date: 20140127
  Serious: Yes (Hospitalization, Other)
  Sender: FDA-Public Use
  Company Number: 163-21880-12070693

PATIENT
  Age: 67 Year
  Sex: Male

DRUGS (19)
  1. REVLIMID (LENALIDOMIDE) (CAPSULES) [Suspect]
     Indication: PLASMA CELL MYELOMA
     Dosage: 25 MG, 14 IN 14 D, PO
     Route: 048
     Dates: start: 20120611, end: 20120708
  2. LEVOQUIN (LEVOFLOXACIN) [Concomitant]
  3. AMARYL (GLIMEPIRIDE) [Concomitant]
  4. COMBIVENT (COMBIVENT) [Concomitant]
  5. LORTAB (VICODIN) [Concomitant]
  6. FLEXERIL (CYCLOBENZAPINE HYDROCHLORIDE) [Concomitant]
  7. TYLENOL (PARACETAMOL) [Concomitant]
  8. PROGRAN (PROPRANOLOL HYDROCHLORIDE) [Concomitant]
  9. NOVOLIN (INSULIN HUMAN INJECTION, ISOPHANE) [Concomitant]
  10. NEURONTIN (GABAPENTIN) [Concomitant]
  11. DEXAMETHASONE (DEXAMETHASONE) [Concomitant]
  12. VITAMIN D3 (COLECALCIFEROL) [Concomitant]
  13. K-DUR (POTASSIUM CHLORIDE) [Concomitant]
  14. PROTONIX [Concomitant]
  15. VITAMINS [Concomitant]
  16. CELEXA (CITALOPRAM HYDROBROMIDE) [Concomitant]
  17. SYMBICORT (SYMBICORT TURBUHALER ^DRACO^) [Concomitant]
  18. LIPITOR (ATORVASTATIN) [Concomitant]
  19. ASA (ACETYLSALICYLIC ACID) [Concomitant]

REACTIONS (5)
  - Pneumonia [None]
  - Dehydration [None]
  - Decreased appetite [None]
  - Asthenia [None]
  - Haemoglobin abnormal [None]
